FAERS Safety Report 24588859 (Version 1)
Quarter: 2024Q4

REPORT INFORMATION
  Report Type: Spontaneous
  Country: CY (occurrence: CY)
  Receive Date: 20241107
  Receipt Date: 20241107
  Transmission Date: 20250115
  Serious: Yes (Other)
  Sender: NORDIC PHARMA
  Company Number: CY-SANDOZ-SDZ2024CY087284

PATIENT
  Age: 50 Year
  Sex: Male

DRUGS (6)
  1. METHOTREXATE [Suspect]
     Active Substance: METHOTREXATE
     Indication: Psoriatic arthropathy
     Dosage: UNKNOWN
     Route: 065
     Dates: start: 202101
  2. INFLIXIMAB [Concomitant]
     Active Substance: INFLIXIMAB
     Indication: Psoriasis
     Dosage: UNKNOWN
     Route: 065
     Dates: start: 202101
  3. TOFACITINIB [Concomitant]
     Active Substance: TOFACITINIB
     Indication: Psoriasis
     Dosage: UNK
     Route: 065
     Dates: start: 202210
  4. TOFACITINIB [Concomitant]
     Active Substance: TOFACITINIB
     Indication: Psoriasis
     Dosage: UNK
     Route: 065
     Dates: start: 202110, end: 202206
  5. LEFLUNOMIDE [Concomitant]
     Active Substance: LEFLUNOMIDE
     Indication: Psoriatic arthropathy
     Dosage: UNK
     Route: 065
     Dates: start: 202110, end: 202206
  6. COSENTYX [Concomitant]
     Active Substance: SECUKINUMAB
     Indication: Psoriasis
     Dosage: 300 MG
     Route: 065
     Dates: start: 202206, end: 202210

REACTIONS (1)
  - IgA nephropathy [Unknown]
